FAERS Safety Report 25277758 (Version 2)
Quarter: 2025Q2

REPORT INFORMATION
  Report Type: Spontaneous
  Country: JP (occurrence: JP)
  Receive Date: 20250507
  Receipt Date: 20250520
  Transmission Date: 20250717
  Serious: Yes (Death)
  Sender: MERCK SHARP & DOHME LLC
  Company Number: JP-009507513-2283145

PATIENT
  Age: 59 Year
  Sex: Male

DRUGS (3)
  1. KEYTRUDA [Suspect]
     Active Substance: PEMBROLIZUMAB
     Indication: Gallbladder cancer stage IV
     Dosage: FOR 2 COURSES
     Route: 041
     Dates: start: 202409, end: 202411
  2. GEMCITABINE [Concomitant]
     Active Substance: GEMCITABINE
     Indication: Gallbladder cancer stage IV
     Route: 041
     Dates: start: 202409, end: 202411
  3. CISPLATIN [Concomitant]
     Active Substance: CISPLATIN
     Indication: Gallbladder cancer stage IV
     Route: 041
     Dates: start: 202409, end: 202411

REACTIONS (2)
  - Malignant neoplasm progression [Fatal]
  - Malignant ascites [Fatal]

NARRATIVE: CASE EVENT DATE: 20240101
